FAERS Safety Report 6645996-2 (Version None)
Quarter: 2010Q1

REPORT INFORMATION
  Report Type: 
  Country: None (occurrence: None)
  Receive Date: 20100318
  Receipt Date: 20100312
  Transmission Date: 20100710
  Serious: Yes (Hospitalization)
  Sender: FDA-Public Use
  Company Number: ALL1-2010-01450

PATIENT
  Age: 50 Year
  Sex: Female

DRUGS (2)
  1. FOSRENOL [Suspect]
     Indication: HYPERPHOSPHATAEMIA
     Dosage: 1500 MG, OTHER (WITH MEALS), ORAL ; 1000 MG, OTHER (WITH SNACKS), ORAL
     Route: 048
     Dates: start: 20090315
  2. FOSRENOL [Suspect]
     Indication: HYPERPHOSPHATAEMIA
     Dosage: 1500 MG, OTHER (WITH MEALS), ORAL ; 1000 MG, OTHER (WITH SNACKS), ORAL
     Route: 048
     Dates: start: 20100315

REACTIONS (3)
  - HYPOGLYCAEMIA [None]
  - UNRESPONSIVE TO STIMULI [None]
  - VITRECTOMY [None]
